FAERS Safety Report 12637387 (Version 1)
Quarter: 2016Q3

REPORT INFORMATION
  Report Type: Spontaneous
  Country: US (occurrence: US)
  Receive Date: 20160809
  Receipt Date: 20160809
  Transmission Date: 20161109
  Serious: No
  Sender: FDA-Public Use
  Company Number: US-BEH-2016060214

PATIENT
  Sex: Female
  Weight: 94 kg

DRUGS (27)
  1. PRIVIGEN [Suspect]
     Active Substance: HUMAN IMMUNOGLOBULIN G
     Indication: HYPOGAMMAGLOBULINAEMIA
     Route: 042
  2. SINGULAIR [Concomitant]
     Active Substance: MONTELUKAST SODIUM
  3. ZYFLO [Concomitant]
     Active Substance: ZILEUTON
  4. NORMAL SALINE [Concomitant]
     Active Substance: SODIUM CHLORIDE
  5. SODIUM CHLORIDE. [Concomitant]
     Active Substance: SODIUM CHLORIDE
  6. NAPROXEN. [Concomitant]
     Active Substance: NAPROXEN
  7. PRIVIGEN [Suspect]
     Active Substance: HUMAN IMMUNOGLOBULIN G
     Route: 042
  8. OMEPRAZOLE. [Concomitant]
     Active Substance: OMEPRAZOLE
  9. AMOXICILLIN. [Concomitant]
     Active Substance: AMOXICILLIN
  10. PROAIR HFA [Concomitant]
     Active Substance: ALBUTEROL SULFATE
  11. DIPHENHYDRAMINE. [Concomitant]
     Active Substance: DIPHENHYDRAMINE
  12. EPIPEN [Concomitant]
     Active Substance: EPINEPHRINE
  13. ENDOCET [Concomitant]
     Active Substance: ACETAMINOPHEN\OXYCODONE HYDROCHLORIDE
  14. IBUPROFEN. [Concomitant]
     Active Substance: IBUPROFEN
  15. CARISOPRODOL. [Concomitant]
     Active Substance: CARISOPRODOL
  16. PRIVIGEN [Suspect]
     Active Substance: HUMAN IMMUNOGLOBULIN G
     Route: 042
     Dates: start: 20091217
  17. OXYCODONE [Concomitant]
     Active Substance: OXYCODONE
  18. ACETAMINOPHEN. [Concomitant]
     Active Substance: ACETAMINOPHEN
  19. LASIX [Concomitant]
     Active Substance: FUROSEMIDE
  20. CYCLONENAZAPRINE [Concomitant]
  21. METFORMIN [Concomitant]
     Active Substance: METFORMIN HYDROCHLORIDE
  22. TYLENOL [Concomitant]
     Active Substance: ACETAMINOPHEN
  23. ARMOUR THYROID [Concomitant]
     Active Substance: THYROID, PORCINE
  24. SPIRIVA [Concomitant]
     Active Substance: TIOTROPIUM BROMIDE MONOHYDRATE
  25. AMOX TR-K [Concomitant]
  26. ASTELIN [Concomitant]
     Active Substance: AZELASTINE HYDROCHLORIDE
  27. PULMICORT TURBUHALER [Concomitant]
     Active Substance: BUDESONIDE

REACTIONS (3)
  - Fatigue [Unknown]
  - Pain [Unknown]
  - Hypertension [Unknown]
